FAERS Safety Report 7682754-4 (Version None)
Quarter: 2011Q3

REPORT INFORMATION
  Report Type: 
  Country: None (occurrence: None)
  Receive Date: 20110815
  Receipt Date: 20110805
  Transmission Date: 20111222
  Serious: Yes (Other)
  Sender: FDA-Public Use
  Company Number: IT-JNJFOC-20110704006

PATIENT
  Age: 40 Year
  Sex: Male

DRUGS (3)
  1. HALDOL [Suspect]
     Indication: SUICIDE ATTEMPT
     Route: 048
  2. LORAZEPAM [Suspect]
     Indication: SUICIDE ATTEMPT
     Route: 048
  3. ALCOHOLIC BEVERAGE [Suspect]
     Indication: PRODUCT USED FOR UNKNOWN INDICATION
     Route: 065

REACTIONS (2)
  - SLUGGISHNESS [None]
  - INTENTIONAL DRUG MISUSE [None]
